FAERS Safety Report 11025158 (Version 4)
Quarter: 2016Q4

REPORT INFORMATION
  Report Type: Spontaneous
  Country: US (occurrence: US)
  Receive Date: 20150414
  Receipt Date: 20161025
  Transmission Date: 20170206
  Serious: No
  Sender: FDA-Public Use
  Company Number: US-JNJFOC-20150405157

PATIENT
  Age: 4 Year
  Sex: Male
  Weight: 72.58 kg

DRUGS (5)
  1. RISPERDAL [Suspect]
     Active Substance: RISPERIDONE
     Indication: ATTENTION DEFICIT/HYPERACTIVITY DISORDER
     Dosage: 0.25 MG TO 1 MG
     Route: 048
     Dates: start: 200611, end: 201402
  2. CELEXA [Concomitant]
     Active Substance: CITALOPRAM HYDROBROMIDE
     Indication: DEPRESSION
     Route: 065
  3. RISPERDAL [Suspect]
     Active Substance: RISPERIDONE
     Indication: POST-TRAUMATIC STRESS DISORDER
     Dosage: 0.25 MG TO 1 MG
     Route: 048
     Dates: start: 200611, end: 201402
  4. ADDERALL [Concomitant]
     Active Substance: AMPHETAMINE ASPARTATE\AMPHETAMINE SULFATE\DEXTROAMPHETAMINE SACCHARATE\DEXTROAMPHETAMINE SULFATE
     Indication: MENTAL DISORDER
     Route: 065
     Dates: start: 2011, end: 2014
  5. DIPHENHYDRAMINE HCL [Concomitant]
     Active Substance: DIPHENHYDRAMINE HYDROCHLORIDE
     Indication: MULTIPLE ALLERGIES
     Route: 065

REACTIONS (6)
  - Pseudogynaecomastia [Recovering/Resolving]
  - Somnolence [Unknown]
  - Off label use [Unknown]
  - Abnormal weight gain [Not Recovered/Not Resolved]
  - Obesity [Unknown]
  - Product use issue [Unknown]

NARRATIVE: CASE EVENT DATE: 200611
